FAERS Safety Report 4642712-0 (Version None)
Quarter: 2005Q2

REPORT INFORMATION
  Report Type: 
  Country: None (occurrence: None)
  Receive Date: 20050422
  Receipt Date: 20050415
  Transmission Date: 20051028
  Serious: Yes (Death)
  Sender: FDA-Public Use
  Company Number: US-JNJFOC-20050303331

PATIENT
  Sex: Male
  Weight: 104.33 kg

DRUGS (1)
  1. FENTANYL [Suspect]
     Indication: INTENTIONAL MISUSE
     Route: 065

REACTIONS (4)
  - DRUG ABUSER [None]
  - DRUG TOXICITY [None]
  - PULMONARY OEDEMA [None]
  - RESPIRATORY FAILURE [None]
